FAERS Safety Report 20246004 (Version 1)
Quarter: 2021Q4

REPORT INFORMATION
  Report Type: Spontaneous
  Country: US (occurrence: None)
  Receive Date: 20211228
  Receipt Date: 20211228
  Transmission Date: 20220303
  Serious: Yes (Other)
  Sender: FDA-Public Use
  Company Number: None

PATIENT
  Age: 73 Year
  Sex: Female

DRUGS (1)
  1. ENFORTUMAB VEDOTIN [Suspect]
     Active Substance: ENFORTUMAB VEDOTIN
     Indication: Transitional cell cancer of renal pelvis and ureter metastatic
     Dates: start: 20201224, end: 20210714

REACTIONS (4)
  - Rash pruritic [None]
  - Rash erythematous [None]
  - Blister [None]
  - Acute hepatic failure [None]

NARRATIVE: CASE EVENT DATE: 20210430
